FAERS Safety Report 5938387-0 (Version None)
Quarter: 2008Q4

REPORT INFORMATION
  Report Type: 
  Country: None (occurrence: None)
  Receive Date: 20081103
  Receipt Date: 20081023
  Transmission Date: 20090506
  Serious: Yes (Other)
  Sender: FDA-Public Use
  Company Number: US-ROCHE-593049

PATIENT
  Age: 44 Year
  Sex: Female

DRUGS (7)
  1. BONIVA [Suspect]
     Indication: OSTEOPOROSIS
     Dosage: DOSE: 3 MG/ 3 ML, PRE-FILLED SYRINGE
     Route: 042
     Dates: start: 20081022
  2. PREDNISONE [Concomitant]
     Indication: PNEUMONIA
     Dosage: OTHER INDICATION: BRONCHITIS
  3. PERCOCET [Concomitant]
     Dosage: DOSE: X3 DAILY
  4. FENTANYL [Concomitant]
  5. SOMA [Concomitant]
     Dosage: AT BEDTIME
  6. RELPAX [Concomitant]
     Dosage: AS NEEDED
  7. TRAMADOL HCL [Concomitant]

REACTIONS (13)
  - ASTHMA [None]
  - COUGH [None]
  - FALL [None]
  - FLUSHING [None]
  - HYPERTENSION [None]
  - HYPERVENTILATION [None]
  - LOSS OF CONSCIOUSNESS [None]
  - MIGRAINE [None]
  - NAUSEA [None]
  - OROPHARYNGEAL DISCOMFORT [None]
  - PANIC REACTION [None]
  - PARAESTHESIA [None]
  - RESPIRATORY ARREST [None]
